FAERS Safety Report 23213102 (Version 1)
Quarter: 2023Q4

REPORT INFORMATION
  Report Type: Spontaneous
  Country: None (occurrence: FR)
  Receive Date: 20231121
  Receipt Date: 20231121
  Transmission Date: 20240110
  Serious: Yes (Other)
  Sender: FDA-Public Use
  Company Number: FR-B.Braun Medical Inc.-2148543

PATIENT
  Age: 18 Year
  Sex: Female
  Weight: 37 kg

DRUGS (2)
  1. ACETAMINOPHEN [Suspect]
     Active Substance: ACETAMINOPHEN
     Indication: Suicide attempt
  2. ACETYLCYSTEINE [Suspect]
     Active Substance: ACETYLCYSTEINE

REACTIONS (2)
  - Prothrombin time ratio decreased [None]
  - Intentional overdose [None]
